FAERS Safety Report 6185480-6 (Version None)
Quarter: 2009Q2

REPORT INFORMATION
  Report Type: 
  Country: None (occurrence: None)
  Receive Date: 20090511
  Receipt Date: 20090505
  Transmission Date: 20091009
  Serious: Yes (Other)
  Sender: FDA-Public Use
  Company Number: PHHY2009DE17345

PATIENT
  Sex: Male

DRUGS (3)
  1. RASILEZ [Suspect]
     Indication: HYPERTENSION
     Dosage: 1 DF, QD (150 MG)
     Dates: start: 20080101, end: 20090401
  2. RASILEZ [Suspect]
     Dosage: 1 DF, QD (300 MG)
     Dates: start: 20090401
  3. BISOPROLOL FUMARATE [Concomitant]
     Dosage: UNK
     Dates: start: 20081201, end: 20090401

REACTIONS (10)
  - BLOOD PRESSURE INCREASED [None]
  - DISORIENTATION [None]
  - DISSOCIATION [None]
  - DIZZINESS [None]
  - GAIT DISTURBANCE [None]
  - HEART RATE INCREASED [None]
  - HYPOAESTHESIA [None]
  - MALAISE [None]
  - PRURITUS [None]
  - VISUAL IMPAIRMENT [None]
